FAERS Safety Report 4307679-3 (Version None)
Quarter: 2004Q1

REPORT INFORMATION
  Report Type: 
  Country: None (occurrence: None)
  Receive Date: 20040225
  Receipt Date: 20030919
  Transmission Date: 20041129
  Serious: Yes (Disabling, Other)
  Sender: FDA-Public Use
  Company Number: WAES 0309USA02183

PATIENT
  Age: 68 Year
  Sex: Male
  Weight: 131.5431 kg

DRUGS (11)
  1. ZOCOR [Suspect]
     Indication: BLOOD CHOLESTEROL INCREASED
     Dosage: 20 MG/DAILY/PO
     Route: 048
     Dates: start: 20000101, end: 20030819
  2. ACTOS [Concomitant]
  3. AGGRENOX [Concomitant]
  4. FLONASE [Concomitant]
  5. GLUCOPHAGE [Concomitant]
  6. LOTENSIN [Concomitant]
  7. TICLID [Concomitant]
  8. VIOXX [Concomitant]
  9. CANNABIS [Concomitant]
  10. LISINOPRIL [Concomitant]
  11. ROSIGLITAZONE MALEATE [Concomitant]

REACTIONS (1)
  - NEUROPATHY PERIPHERAL [None]
